FAERS Safety Report 4302953-9 (Version None)
Quarter: 2004Q1

REPORT INFORMATION
  Report Type: 
  Country: None (occurrence: None)
  Receive Date: 20040126
  Receipt Date: 20030925
  Transmission Date: 20041129
  Serious: No
  Sender: FDA-Public Use
  Company Number: USA030948278

PATIENT
  Age: 10 Year
  Sex: Male
  Weight: 37 kg

DRUGS (4)
  1. STRATTERA [Suspect]
     Dosage: 50 MG/IN THE MORNING
     Dates: start: 20030816
  2. DEPAKOTE [Concomitant]
  3. CLONIDINE [Concomitant]
  4. METHYLIN (METHYLPHENIDATE HYDROCHLORIDE) [Concomitant]

REACTIONS (3)
  - DISTURBANCE IN ATTENTION [None]
  - EDUCATIONAL PROBLEM [None]
  - PSYCHOMOTOR HYPERACTIVITY [None]
